FAERS Safety Report 10842596 (Version 3)
Quarter: 2015Q2

REPORT INFORMATION
  Report Type: Spontaneous
  Country: US (occurrence: US)
  Receive Date: 20150220
  Receipt Date: 20150512
  Transmission Date: 20150821
  Serious: Yes (Other)
  Sender: FDA-Public Use
  Company Number: US-JNJFOC-20150210899

PATIENT
  Age: 64 Year
  Sex: Female
  Weight: 79.56 kg

DRUGS (36)
  1. CARDIZEM CD [Concomitant]
     Active Substance: DILTIAZEM HYDROCHLORIDE
     Route: 048
     Dates: start: 20100115
  2. METOPROLOL SUCCINATE. [Concomitant]
     Active Substance: METOPROLOL SUCCINATE
     Route: 048
     Dates: start: 20121105
  3. VOLTAREN [Concomitant]
     Active Substance: DICLOFENAC SODIUM
     Dosage: APPLY SPARINGLY TO AFFECTED AREA ONCE DAILY
     Route: 062
     Dates: start: 20121211
  4. TRAMADOL HCL [Concomitant]
     Active Substance: TRAMADOL HYDROCHLORIDE
     Dosage: ONE TABLET EVERY 4 TO 6 HOURS AS NEEDED
     Route: 048
     Dates: start: 20120924
  5. ZALEPLON. [Concomitant]
     Active Substance: ZALEPLON
     Dosage: 1 CAPSULE AT BEDTIME AS NEEDED
     Route: 048
     Dates: start: 20130909
  6. ZOFRAN [Concomitant]
     Active Substance: ONDANSETRON HYDROCHLORIDE
     Indication: PREMEDICATION
     Route: 042
     Dates: start: 20130508
  7. CLONIDINE. [Concomitant]
     Active Substance: CLONIDINE
     Route: 048
     Dates: start: 20070618
  8. DIPHENHYDRAMINE HYDROCHLORIDE. [Concomitant]
     Active Substance: DIPHENHYDRAMINE HYDROCHLORIDE
     Route: 015
     Dates: start: 20140902
  9. FLUOCINONIDE. [Concomitant]
     Active Substance: FLUOCINONIDE
     Route: 061
     Dates: start: 20130301
  10. LYRICA [Concomitant]
     Active Substance: PREGABALIN
     Route: 048
     Dates: start: 20150203
  11. METFORMIN HYDROCHLORIDE. [Concomitant]
     Active Substance: METFORMIN HYDROCHLORIDE
     Route: 048
     Dates: start: 20070315
  12. IMITREX [Concomitant]
     Active Substance: SUMATRIPTAN\SUMATRIPTAN SUCCINATE
     Indication: MIGRAINE
     Dosage: MAY REPEAT IN 2 HOURS IF NEEDED
     Route: 048
     Dates: start: 20100615
  13. SOLU-MEDROL [Concomitant]
     Active Substance: METHYLPREDNISOLONE SODIUM SUCCINATE
     Route: 042
  14. REMICADE [Suspect]
     Active Substance: INFLIXIMAB
     Indication: CROHN^S DISEASE
     Route: 042
     Dates: start: 20131003
  15. BENADRYL [Concomitant]
     Active Substance: DIPHENHYDRAMINE HYDROCHLORIDE
     Indication: PREMEDICATION
     Route: 042
     Dates: end: 20130515
  16. TYLENOL [Concomitant]
     Active Substance: ACETAMINOPHEN
     Indication: PREMEDICATION
     Route: 048
     Dates: start: 20140902
  17. CATHFLO ACTIVASE [Concomitant]
     Active Substance: ALTEPLASE
     Dosage: USE AS DIRECTED
     Route: 065
     Dates: start: 20121023
  18. DOXEPIN HYDROCHLORIDE. [Concomitant]
     Active Substance: DOXEPIN HYDROCHLORIDE
     Dosage: AT BEDTIME
     Route: 048
     Dates: start: 20121114
  19. GLUCOTROL XL [Concomitant]
     Active Substance: GLIPIZIDE
     Dosage: EXTENDED RELEASE
     Route: 048
     Dates: start: 20120319
  20. NITROGLYCERIN. [Concomitant]
     Active Substance: NITROGLYCERIN
     Dosage: UPTO 3 DOSES AS NEEDED FOR CHEST PAIN
     Route: 060
     Dates: start: 20090504
  21. TRAZODONE HYDROCHLORIDE. [Concomitant]
     Active Substance: TRAZODONE HYDROCHLORIDE
     Dosage: 1 TO 3 TABLETS AT BEDTIME
     Route: 048
     Dates: start: 20130520
  22. IMDUR [Concomitant]
     Active Substance: ISOSORBIDE MONONITRATE
     Route: 048
     Dates: start: 20121105
  23. ACETAMINOPHEN. [Concomitant]
     Active Substance: ACETAMINOPHEN
     Indication: PREMEDICATION
     Route: 048
     Dates: start: 20130515
  24. GLUCOTROL XL [Concomitant]
     Active Substance: GLIPIZIDE
     Dosage: EXTENDED RELEASE
     Route: 048
     Dates: start: 20110629
  25. JANUVIA [Concomitant]
     Active Substance: SITAGLIPTIN PHOSPHATE
     Route: 048
     Dates: start: 20090102
  26. ONDANSETRON HYDROCHLORIDE. [Concomitant]
     Active Substance: ONDANSETRON HYDROCHLORIDE
     Dosage: 4 MG/2 ML
     Route: 042
     Dates: start: 20140902
  27. REMICADE [Suspect]
     Active Substance: INFLIXIMAB
     Indication: CROHN^S DISEASE
     Route: 042
     Dates: start: 20090106
  28. BENADRYL [Concomitant]
     Active Substance: DIPHENHYDRAMINE HYDROCHLORIDE
     Indication: PREMEDICATION
     Route: 042
     Dates: end: 20140902
  29. ZOFRAN [Concomitant]
     Active Substance: ONDANSETRON HYDROCHLORIDE
     Indication: PREMEDICATION
     Route: 042
  30. CETRIZINE [Concomitant]
     Active Substance: CETIRIZINE HYDROCHLORIDE
     Route: 048
     Dates: start: 20130520
  31. CRESTOR [Concomitant]
     Active Substance: ROSUVASTATIN CALCIUM
     Route: 048
     Dates: start: 20091026
  32. FLUOCINONIDE. [Concomitant]
     Active Substance: FLUOCINONIDE
     Route: 061
     Dates: start: 20131025
  33. OMEPRAZOLE. [Concomitant]
     Active Substance: OMEPRAZOLE
     Route: 048
     Dates: start: 20130513
  34. REMICADE [Suspect]
     Active Substance: INFLIXIMAB
     Indication: CROHN^S DISEASE
     Route: 042
     Dates: start: 20140902
  35. LACTULOSE. [Concomitant]
     Active Substance: LACTULOSE
     Dosage: 20G/30ML??60 ML DAILY UNTIL FOOD BOWEL MOVEMENT IS ACHIEVED
     Route: 048
     Dates: start: 20140320
  36. SOLARAZE [Concomitant]
     Active Substance: DICLOFENAC SODIUM
     Route: 062
     Dates: start: 20120321

REACTIONS (8)
  - Infusion related reaction [Recovered/Resolved]
  - Device dislocation [Recovered/Resolved]
  - Twiddler^s syndrome [Unknown]
  - Swelling [Unknown]
  - Device malfunction [Recovered/Resolved with Sequelae]
  - Catheter site swelling [Recovered/Resolved]
  - Infusion site extravasation [Unknown]
  - Hypertension [Recovered/Resolved]

NARRATIVE: CASE EVENT DATE: 20131003
